FAERS Safety Report 6859366-5 (Version None)
Quarter: 2010Q3

REPORT INFORMATION
  Report Type: 
  Country: None (occurrence: None)
  Receive Date: 20100719
  Receipt Date: 20080228
  Transmission Date: 20110219
  Serious: No
  Sender: FDA-Public Use
  Company Number: US-PFIZER INC-2008021153

PATIENT
  Age: 59 Year
  Sex: Female
  Weight: 63.636 kg

DRUGS (4)
  1. CHANTIX [Suspect]
     Indication: SMOKING CESSATION THERAPY
     Route: 048
     Dates: start: 20080201, end: 20080224
  2. LORTAB [Suspect]
     Indication: PAIN
     Dates: end: 20080223
  3. ATENOLOL [Concomitant]
     Indication: HYPERTENSION
  4. VALIUM [Concomitant]
     Indication: ANXIETY

REACTIONS (4)
  - ANXIETY [None]
  - DEPRESSION [None]
  - DYSGEUSIA [None]
  - HEADACHE [None]
